FAERS Safety Report 6924348-1 (Version None)
Quarter: 2010Q3

REPORT INFORMATION
  Report Type: 
  Country: None (occurrence: None)
  Receive Date: 20100811
  Receipt Date: 20100811
  Transmission Date: 20110219
  Serious: Yes (Other)
  Sender: FDA-Public Use
  Company Number: None

PATIENT
  Sex: Female

DRUGS (4)
  1. BACTRIM DS [Suspect]
     Dosage: 800/160 BID PO
     Route: 048
     Dates: start: 20090210
  2. MUCINEX D [Concomitant]
  3. ACETAMINOPHEN [Concomitant]
  4. SUDAFED 12 HOUR [Concomitant]

REACTIONS (2)
  - LIP SWELLING [None]
  - SWELLING FACE [None]
